FAERS Safety Report 4830163-5 (Version None)
Quarter: 2005Q4

REPORT INFORMATION
  Report Type: 
  Country: None (occurrence: None)
  Receive Date: 20051117
  Receipt Date: 20051031
  Transmission Date: 20060501
  Serious: Yes (Life-Threatening, Disabling)
  Sender: FDA-Public Use
  Company Number: US-MERCK-0511USA00109

PATIENT
  Age: 67 Year
  Sex: Male
  Weight: 108 kg

DRUGS (8)
  1. VIOXX [Suspect]
     Indication: ARTHRALGIA
     Route: 048
     Dates: start: 20010701, end: 20050101
  2. SYNTHROID [Concomitant]
     Indication: THYROID DISORDER
     Route: 065
  3. PRILOSEC [Concomitant]
     Indication: GASTRIC DISORDER
     Route: 065
  4. LESCOL [Concomitant]
     Indication: BLOOD CHOLESTEROL INCREASED
     Route: 065
     Dates: start: 20020101, end: 20030101
  5. DIOVAN [Concomitant]
     Indication: HYPERTENSION
     Route: 065
     Dates: start: 20020101, end: 20050101
  6. CLARINEX [Concomitant]
     Route: 065
  7. CELEXA [Concomitant]
     Route: 065
     Dates: start: 20000101, end: 20010101
  8. CELEXA [Concomitant]
     Route: 065
     Dates: start: 20000101, end: 20010101

REACTIONS (5)
  - BLOOD CHOLESTEROL INCREASED [None]
  - BLOOD TRIGLYCERIDES INCREASED [None]
  - CEREBROVASCULAR ACCIDENT [None]
  - DEPRESSION [None]
  - TRANSIENT ISCHAEMIC ATTACK [None]
